FAERS Safety Report 4610867-X (Version None)
Quarter: 2005Q2

REPORT INFORMATION
  Report Type: 
  Country: None (occurrence: None)
  Receive Date: 20050301
  Receipt Date: 20041124
  Transmission Date: 20051028
  Serious: Yes (Hospitalization)
  Sender: FDA-Public Use
  Company Number: MPS1-10305

PATIENT
  Age: 7 Year
  Sex: Male
  Weight: 21.5912 kg

DRUGS (7)
  1. ALDURAZYME [Suspect]
     Indication: MUCOPOLYSACCHARIDOSIS IH
     Dosage: 14.5 MG QWK IV
     Dates: start: 20040401, end: 20041124
  2. ALDURAZYME [Suspect]
     Indication: MUCOPOLYSACCHARIDOSIS IH
     Dosage: 0.3 MG/KG QWK IVE
     Dates: start: 20050128
  3. BENADRYL [Concomitant]
  4. TYLENOL (CAPLET) [Concomitant]
  5. XOPENEX [Concomitant]
  6. PULMICORT [Concomitant]
  7. ATROVENT [Concomitant]

REACTIONS (4)
  - BRONCHOSPASM [None]
  - HYPOTENSION [None]
  - OXYGEN SATURATION DECREASED [None]
  - RASH PRURITIC [None]
